FAERS Safety Report 25450478 (Version 2)
Quarter: 2025Q2

REPORT INFORMATION
  Report Type: Spontaneous
  Country: CN (occurrence: CN)
  Receive Date: 20250618
  Receipt Date: 20250627
  Transmission Date: 20250716
  Serious: Yes (Hospitalization)
  Sender: ROCHE
  Company Number: CN-BoehringerIngelheim-2025-BI-076710

PATIENT
  Age: 80 Year
  Sex: Male

DRUGS (2)
  1. ALTEPLASE [Suspect]
     Active Substance: ALTEPLASE
     Indication: Cerebral infarction
     Route: 042
     Dates: start: 20250602, end: 20250602
  2. ALTEPLASE [Suspect]
     Active Substance: ALTEPLASE
     Route: 042
     Dates: start: 20250602, end: 20250602

REACTIONS (7)
  - Hyperhidrosis [Recovering/Resolving]
  - Feeling jittery [Recovering/Resolving]
  - Pallor [Recovering/Resolving]
  - Dysphoria [Recovering/Resolving]
  - Blood pressure increased [Recovering/Resolving]
  - Muscle strength abnormal [Unknown]
  - Dysarthria [Unknown]

NARRATIVE: CASE EVENT DATE: 20250602
